FAERS Safety Report 8565437-8 (Version None)
Quarter: 2012Q3

REPORT INFORMATION
  Report Type: 
  Country: None (occurrence: None)
  Receive Date: 20120803
  Receipt Date: 20120731
  Transmission Date: 20120928
  Serious: Yes (Hospitalization, Other)
  Sender: FDA-Public Use
  Company Number: US-PFIZER INC-2012152311

PATIENT
  Sex: Female
  Weight: 61.2 kg

DRUGS (6)
  1. CHAPSTICK CLASSIC [Suspect]
     Indication: LIP DRY
     Dosage: UNK, AS NEEDED
  2. CHAPSTICK CLASSIC STRAWBERRY [Suspect]
     Indication: LIP DRY
     Dosage: UNK, AS NEEDED
     Dates: start: 20120101, end: 20120101
  3. CHAPSTICK CLASSIC [Suspect]
     Dosage: UNK, AS NEEDED
     Dates: start: 20120601, end: 20120601
  4. LYRICA [Suspect]
     Indication: NEUROPATHY PERIPHERAL
     Dosage: 100 MG, 3X/DAY
     Route: 048
     Dates: start: 20120601, end: 20120601
  5. CHAPSTICK CLASSIC [Suspect]
     Dosage: UNK, AS NEEDED
     Dates: start: 20120101, end: 20120101
  6. SYNTHROID [Concomitant]
     Dosage: 100 UG, DAILY
     Route: 048

REACTIONS (4)
  - PRESYNCOPE [None]
  - CHEILITIS [None]
  - ABDOMINAL PAIN UPPER [None]
  - LIP SWELLING [None]
